FAERS Safety Report 4463552-1 (Version None)
Quarter: 2004Q3

REPORT INFORMATION
  Report Type: 
  Country: None (occurrence: None)
  Receive Date: 20040928
  Receipt Date: 20040907
  Transmission Date: 20050211
  Serious: Yes (Hospitalization)
  Sender: FDA-Public Use
  Company Number: B0345449A

PATIENT
  Sex: Female

DRUGS (1)
  1. FLOVENT [Suspect]
     Dosage: 100 MG

REACTIONS (3)
  - DYSGEUSIA [None]
  - PAROSMIA [None]
  - VOMITING [None]
